FAERS Safety Report 8559540 (Version 2)
Quarter: 2013Q1

REPORT INFORMATION
  Report Type: Spontaneous
  Country: US (occurrence: US)
  Receive Date: 20120514
  Receipt Date: 20130221
  Transmission Date: 20140127
  Serious: No
  Sender: FDA-Public Use
  Company Number: US-PFIZER INC-2012113736

PATIENT
  Sex: Female
  Weight: 64.85 kg

DRUGS (4)
  1. NEURONTIN [Suspect]
     Indication: PAIN
     Dosage: 600 MG, 3X/DAY
  2. NEURONTIN [Suspect]
     Indication: BACK DISORDER
  3. NEURONTIN [Suspect]
     Indication: NEURALGIA
  4. NEURONTIN [Suspect]
     Indication: FIBROMYALGIA

REACTIONS (2)
  - Amnesia [Unknown]
  - Malaise [Unknown]
